FAERS Safety Report 8857171 (Version 1)
Quarter: 2012Q4

REPORT INFORMATION
  Report Type: 
  Country: SG (occurrence: SG)
  Receive Date: 20121024
  Receipt Date: 20121024
  Transmission Date: 20130627
  Serious: Yes (Hospitalization)
  Sender: FDA-Public Use
  Company Number: SG-PFIZER INC-2012262998

PATIENT
  Age: 61 Year
  Sex: Male

DRUGS (2)
  1. PIPERACILLIN/TAZOBACTAM STRAGEN [Suspect]
  2. PIPERACILLIN [Suspect]

REACTIONS (1)
  - Acute generalised exanthematous pustulosis [Unknown]
